FAERS Safety Report 8090763-9 (Version None)
Quarter: 2012Q1

REPORT INFORMATION
  Report Type: 
  Country: None (occurrence: None)
  Receive Date: 20120125
  Receipt Date: 20120116
  Transmission Date: 20120608
  Serious: Yes (Hospitalization, Other)
  Sender: FDA-Public Use
  Company Number: 2011MA017098

PATIENT
  Age: 43 Year
  Sex: Female

DRUGS (1)
  1. RAMIPRIL [Suspect]
     Indication: HYPERTENSION
     Dosage: 1.25 MG;QD;PO
     Route: 048
     Dates: start: 20110927, end: 20111124

REACTIONS (12)
  - PALPITATIONS [None]
  - HYPERVENTILATION [None]
  - HYPOAESTHESIA [None]
  - DIZZINESS [None]
  - TINNITUS [None]
  - SLEEP DISORDER [None]
  - HYPERHIDROSIS [None]
  - FEELING ABNORMAL [None]
  - PANIC ATTACK [None]
  - MALAISE [None]
  - DYSPHONIA [None]
  - DYSPNOEA [None]
